FAERS Safety Report 7464917-6 (Version None)
Quarter: 2011Q2

REPORT INFORMATION
  Report Type: 
  Country: None (occurrence: None)
  Receive Date: 20110509
  Receipt Date: 20110324
  Transmission Date: 20111010
  Serious: Yes (Hospitalization)
  Sender: FDA-Public Use
  Company Number: US-BAYER-201037918NA

PATIENT
  Age: 51 Year
  Sex: Female

DRUGS (9)
  1. YAZ [Suspect]
     Indication: MENSTRUATION IRREGULAR
  2. DROSPIRENONE AND ETHINYL ESTRADIOL [Suspect]
     Indication: ACNE
  3. PRILOSEC [Concomitant]
  4. PROPOXYPHENE HCL AND ACETAMINOPHEN [Concomitant]
  5. AZITHROMYCIN [Concomitant]
  6. YASMIN [Suspect]
     Indication: ACNE
  7. ZYRTEC [Concomitant]
  8. YAZ [Suspect]
     Indication: ACNE
  9. CYCLOBENZAPRINE [Concomitant]

REACTIONS (2)
  - THROMBOSIS [None]
  - CEREBROVASCULAR ACCIDENT [None]
